FAERS Safety Report 5859233-X (Version None)
Quarter: 2008Q3

REPORT INFORMATION
  Report Type: 
  Country: None (occurrence: None)
  Receive Date: 20080825
  Receipt Date: 20080818
  Transmission Date: 20090109
  Serious: Yes (Life-Threatening, Hospitalization)
  Sender: FDA-Public Use
  Company Number: OMPQ-NO-0806S-0407

PATIENT
  Age: 31 Year
  Sex: Female

DRUGS (4)
  1. OMNIPAQUE 140 [Suspect]
     Indication: BACK PAIN
     Dosage: 10 ML, SINGLE DOSE, I.T.
     Route: 038
     Dates: start: 20080617, end: 20080617
  2. OMNIPAQUE 140 [Suspect]
  3. CELEBREX [Concomitant]
  4. ORPHENADINE + PARACETAMOL (ORKELAX) [Concomitant]

REACTIONS (2)
  - CONVULSION [None]
  - RHABDOMYOLYSIS [None]
